FAERS Safety Report 6375469-6 (Version None)
Quarter: 2009Q3

REPORT INFORMATION
  Report Type: 
  Country: None (occurrence: None)
  Receive Date: 20090924
  Receipt Date: 20090914
  Transmission Date: 20100115
  Serious: Yes (Hospitalization)
  Sender: FDA-Public Use
  Company Number: FR-PFIZER INC-2009267901

PATIENT
  Age: 26 Year

DRUGS (5)
  1. SALAZOPYRIN [Suspect]
     Indication: RHEUMATOID ARTHRITIS
     Dosage: UNK
     Route: 048
     Dates: start: 20090601, end: 20090804
  2. ACADIONE [Suspect]
     Indication: RHEUMATOID ARTHRITIS
     Dosage: 250 MG, 4X/DAY
     Route: 048
     Dates: start: 20081201
  3. MEDROL [Concomitant]
  4. ASPEGIC 1000 [Concomitant]
  5. KETOPROFEN [Concomitant]

REACTIONS (1)
  - NEPHRITIC SYNDROME [None]
